FAERS Safety Report 5978509-9 (Version None)
Quarter: 2008Q4

REPORT INFORMATION
  Report Type: 
  Country: None (occurrence: None)
  Receive Date: 20081204
  Receipt Date: 20081128
  Transmission Date: 20090506
  Serious: Yes (Hospitalization)
  Sender: FDA-Public Use
  Company Number: AU-WYE-G00772907

PATIENT
  Sex: Male

DRUGS (2)
  1. EFFEXOR [Suspect]
     Dosage: UNKNOWN
     Route: 048
     Dates: start: 20050101, end: 20050101
  2. AURORIX [Suspect]
     Dosage: UNKNOWN
     Route: 048
     Dates: start: 20050101, end: 20050101

REACTIONS (2)
  - DRUG TOXICITY [None]
  - MALAISE [None]
